FAERS Safety Report 16691165 (Version 4)
Quarter: 2019Q4

REPORT INFORMATION
  Report Type: Report from Study
  Country: US (occurrence: US)
  Receive Date: 20190812
  Receipt Date: 20191212
  Transmission Date: 20200122
  Serious: No
  Sender: FDA-Public Use
  Company Number: PHEH2019US033001

PATIENT
  Sex: Female

DRUGS (1)
  1. ENTRESTO [Suspect]
     Active Substance: SACUBITRIL\VALSARTAN
     Indication: CARDIAC FAILURE
     Dosage: UNK UNK, BID
     Route: 048

REACTIONS (6)
  - Pain in extremity [Unknown]
  - Chest pain [Unknown]
  - Dizziness [Unknown]
  - Paraesthesia [Unknown]
  - Movement disorder [Unknown]
  - Dyspnoea [Unknown]
